FAERS Safety Report 16452516 (Version 1)
Quarter: 2019Q2

REPORT INFORMATION
  Report Type: Spontaneous
  Country: US (occurrence: US)
  Receive Date: 20190619
  Receipt Date: 20190619
  Transmission Date: 20190711
  Serious: No
  Sender: FDA-Public Use
  Company Number: US-ROCHE-2146768

PATIENT
  Age: 30 Year
  Sex: Female

DRUGS (2)
  1. KEVZARA [Concomitant]
     Active Substance: SARILUMAB
  2. ACTEMRA [Suspect]
     Active Substance: TOCILIZUMAB
     Indication: RHEUMATOID ARTHRITIS
     Dosage: 3 YEAR
     Route: 065
     Dates: start: 20180626

REACTIONS (2)
  - No adverse event [Unknown]
  - Treatment failure [Unknown]

NARRATIVE: CASE EVENT DATE: 20180626
